FAERS Safety Report 5809100-2 (Version None)
Quarter: 2008Q3

REPORT INFORMATION
  Report Type: 
  Country: None (occurrence: None)
  Receive Date: 20080714
  Receipt Date: 20080704
  Transmission Date: 20090109
  Serious: Yes (Other)
  Sender: FDA-Public Use
  Company Number: FR-AMGEN-US293746

PATIENT
  Sex: Male
  Weight: 80 kg

DRUGS (1)
  1. ENBREL [Suspect]
     Indication: ANKYLOSING SPONDYLITIS
     Dosage: LYOPHILIZED/50 MG 1 TIME PER WEEK
     Route: 058
     Dates: start: 20050101

REACTIONS (2)
  - ABORTION SPONTANEOUS [None]
  - PATERNAL DRUGS AFFECTING FOETUS [None]
